FAERS Safety Report 8583010 (Version 3)
Quarter: 2012Q4

REPORT INFORMATION
  Report Type: 
  Country: DK (occurrence: DK)
  Receive Date: 20120529
  Receipt Date: 20120924
  Transmission Date: 20130627
  Serious: Yes (Hospitalization)
  Sender: FDA-Public Use
  Company Number: PHHY2012DK044067

PATIENT
  Age: 75 Year
  Sex: Female

DRUGS (2)
  1. SIMVASTATIN [Suspect]
     Indication: HYPERCHOLESTEROLAEMIA
     Dosage: 20 mg, QD
     Dates: start: 2005, end: 20120430
  2. HJERTEMAGNYL [Concomitant]
     Dosage: 1 DF, daily
     Dates: start: 2007

REACTIONS (4)
  - Loss of consciousness [Recovered/Resolved]
  - Amnesia [Unknown]
  - Insomnia [Unknown]
  - Dizziness [Unknown]
